FAERS Safety Report 23747236 (Version 1)
Quarter: 2024Q2

REPORT INFORMATION
  Report Type: Spontaneous
  Country: US (occurrence: None)
  Receive Date: 20240415
  Receipt Date: 20240415
  Transmission Date: 20240716
  Serious: Yes (Disabling)
  Sender: FDA-Public Use
  Company Number: None

PATIENT
  Age: 47 Year
  Sex: Female
  Weight: 64.35 kg

DRUGS (7)
  1. CIPROFLOXACIN [Suspect]
     Active Substance: CIPROFLOXACIN
     Indication: Urinary tract infection
     Dosage: OTHER QUANTITY : 1 CAPSULE(S);?FREQUENCY : EVERY 12 HOURS;?
     Route: 048
     Dates: start: 20230924, end: 20231001
  2. RINVOQ [Concomitant]
     Active Substance: UPADACITINIB
  3. busiprone [Concomitant]
  4. BUPROPION [Concomitant]
  5. Beupenorphine [Concomitant]
  6. IBUPROFEN [Concomitant]
  7. TYLENOL [Concomitant]

REACTIONS (6)
  - Arthralgia [None]
  - Headache [None]
  - Cartilage injury [None]
  - Rotator cuff syndrome [None]
  - Rotator cuff syndrome [None]
  - Tendonitis [None]

NARRATIVE: CASE EVENT DATE: 20231127
